FAERS Safety Report 23256859 (Version 1)
Quarter: 2023Q4

REPORT INFORMATION
  Report Type: Spontaneous
  Country: US (occurrence: US)
  Receive Date: 20231204
  Receipt Date: 20231204
  Transmission Date: 20240109
  Serious: Yes (Other)
  Sender: FDA-Public Use
  Company Number: US-drreddys-LIT/USA/23/0187492

PATIENT
  Age: 72 Year
  Sex: Male

DRUGS (20)
  1. DEXAMETHASONE [Suspect]
     Active Substance: DEXAMETHASONE
     Indication: Hypotony maculopathy
     Dates: start: 202108, end: 202201
  2. DEXAMETHASONE [Suspect]
     Active Substance: DEXAMETHASONE
     Indication: Choroidal detachment
  3. DEXAMETHASONE [Suspect]
     Active Substance: DEXAMETHASONE
     Indication: Chorioretinal folds
  4. TRIAMCINOLONE [Suspect]
     Active Substance: TRIAMCINOLONE
     Indication: Hypotony maculopathy
     Dosage: 40 MG/1.0 CC BILATERALLY?ONE INJECTION OF INTRAOCULAR TRIAMCINOLONE IN THE LEFT EYE AND FOUR INJECTI
     Route: 031
     Dates: start: 202010, end: 202012
  5. TRIAMCINOLONE [Suspect]
     Active Substance: TRIAMCINOLONE
     Indication: Choroidal detachment
     Dates: start: 202105, end: 202107
  6. TRIAMCINOLONE [Suspect]
     Active Substance: TRIAMCINOLONE
     Indication: Chorioretinal folds
  7. ATROPINE [Suspect]
     Active Substance: ATROPINE\ATROPINE SULFATE
     Indication: Hypotony maculopathy
  8. ATROPINE [Suspect]
     Active Substance: ATROPINE\ATROPINE SULFATE
     Indication: Choroidal detachment
  9. ATROPINE [Suspect]
     Active Substance: ATROPINE\ATROPINE SULFATE
     Indication: Chorioretinal folds
  10. PREDNISOLONE ACETATE [Suspect]
     Active Substance: PREDNISOLONE ACETATE
     Indication: Hypotony maculopathy
  11. PREDNISOLONE ACETATE [Suspect]
     Active Substance: PREDNISOLONE ACETATE
     Indication: Choroidal detachment
  12. PREDNISOLONE ACETATE [Suspect]
     Active Substance: PREDNISOLONE ACETATE
     Indication: Chorioretinal folds
  13. FLUOCINOLONE ACETONIDE [Suspect]
     Active Substance: FLUOCINOLONE ACETONIDE
     Indication: Hypotony maculopathy
  14. FLUOCINOLONE ACETONIDE [Suspect]
     Active Substance: FLUOCINOLONE ACETONIDE
     Indication: Choroidal detachment
  15. FLUOCINOLONE ACETONIDE [Suspect]
     Active Substance: FLUOCINOLONE ACETONIDE
     Indication: Chorioretinal folds
  16. DIFLUPREDNATE [Suspect]
     Active Substance: DIFLUPREDNATE
     Indication: Hypotony maculopathy
     Dosage: BILATERALLY
  17. DIFLUPREDNATE [Suspect]
     Active Substance: DIFLUPREDNATE
     Indication: Choroidal detachment
     Dates: start: 202105, end: 202107
  18. DIFLUPREDNATE [Suspect]
     Active Substance: DIFLUPREDNATE
     Indication: Chorioretinal folds
  19. IPILIMUMAB [Concomitant]
     Active Substance: IPILIMUMAB
     Indication: Metastatic malignant melanoma
     Dates: start: 202008, end: 202010
  20. NIVOLUMAB [Concomitant]
     Active Substance: NIVOLUMAB
     Indication: Metastatic malignant melanoma
     Dates: start: 202008, end: 202010

REACTIONS (1)
  - Drug ineffective [Unknown]
